FAERS Safety Report 25385472 (Version 2)
Quarter: 2025Q2

REPORT INFORMATION
  Report Type: Spontaneous
  Country: CO (occurrence: CO)
  Receive Date: 20250602
  Receipt Date: 20250612
  Transmission Date: 20250716
  Serious: Yes (Other)
  Sender: SANOFI AVENTIS
  Company Number: CO-SA-2025SA154585

PATIENT
  Age: 41 Year
  Sex: Male

DRUGS (5)
  1. DUPIXENT [Suspect]
     Active Substance: DUPILUMAB
     Indication: Chronic rhinosinusitis with nasal polyps
     Dosage: 300 MG, QOW
     Route: 058
     Dates: start: 2022
  2. LANTUS [Concomitant]
     Active Substance: INSULIN GLARGINE
     Indication: Type 2 diabetes mellitus
     Dosage: 20 U, QD
     Route: 058
     Dates: start: 202502
  3. EMPAGLIFLOZIN\METFORMIN HYDROCHLORIDE [Concomitant]
     Active Substance: EMPAGLIFLOZIN\METFORMIN HYDROCHLORIDE
     Indication: Type 2 diabetes mellitus
     Dosage: 1 G/KG 1 DOSE EVERY 1 DAY[ 100MG/12.5MG]
     Route: 048
     Dates: start: 2024
  4. HYDROCHLOROTHIAZIDE\LOSARTAN POTASSIUM [Concomitant]
     Active Substance: HYDROCHLOROTHIAZIDE\LOSARTAN POTASSIUM
     Indication: Hypertension
     Dosage: 1 DF, Q12D, 12.5 MG/ 50 MG
     Route: 048
     Dates: start: 202412
  5. OXYMETAZOLINE [Concomitant]
     Active Substance: OXYMETAZOLINE
     Indication: Chronic rhinosinusitis with nasal polyps

REACTIONS (10)
  - Type 2 diabetes mellitus [Recovering/Resolving]
  - Diabetes mellitus inadequate control [Recovering/Resolving]
  - Hypertension [Recovering/Resolving]
  - Rhinorrhoea [Not Recovered/Not Resolved]
  - Dyspnoea [Not Recovered/Not Resolved]
  - Injection site pain [Recovered/Resolved]
  - Chronic rhinosinusitis with nasal polyps [Recovered/Resolved]
  - Condition aggravated [Recovered/Resolved]
  - Dyspnoea [Recovered/Resolved]
  - Sleep disorder due to a general medical condition [Recovered/Resolved]

NARRATIVE: CASE EVENT DATE: 20230101
